FAERS Safety Report 14388002 (Version 2)
Quarter: 2018Q2

REPORT INFORMATION
  Report Type: Spontaneous
  Country: US (occurrence: US)
  Receive Date: 20180115
  Receipt Date: 20180605
  Transmission Date: 20180711
  Serious: Yes (Other)
  Sender: FDA-Public Use
  Company Number: US-SA-2017SA203130

PATIENT
  Age: 76 Year
  Sex: Female
  Weight: 95 kg

DRUGS (9)
  1. NEOSAR [Concomitant]
     Active Substance: CYCLOPHOSPHAMIDE
  2. TAXOTERE [Suspect]
     Active Substance: DOCETAXEL
     Indication: BREAST CANCER STAGE II
     Dosage: UNK UNK,Q3W
     Route: 042
     Dates: start: 20141002, end: 20141002
  3. CRESTOR [Concomitant]
     Active Substance: ROSUVASTATIN CALCIUM
     Dosage: 20 MG,HS
     Route: 048
     Dates: start: 20140923
  4. ZETIA [Concomitant]
     Active Substance: EZETIMIBE
     Dosage: 10 MG,QD
     Route: 048
     Dates: start: 20140923
  5. TAXOTERE [Suspect]
     Active Substance: DOCETAXEL
     Dosage: UNK UNK,Q3W
     Route: 042
     Dates: start: 20141229, end: 20141229
  6. CYTOXAN [Concomitant]
     Active Substance: CYCLOPHOSPHAMIDE
  7. DIOVAN [Concomitant]
     Active Substance: VALSARTAN
     Dosage: 12.5 MG,QD
     Route: 048
     Dates: start: 20140923
  8. HYDROCHLOROTHIAZIDE. [Concomitant]
     Active Substance: HYDROCHLOROTHIAZIDE
     Dosage: 12.5 MG,QD
     Route: 048
     Dates: start: 20141002
  9. PLAVIX [Concomitant]
     Active Substance: CLOPIDOGREL BISULFATE
     Dosage: 75 MG,QD
     Route: 048
     Dates: start: 20140923

REACTIONS (2)
  - Alopecia [Recovering/Resolving]
  - Psychological trauma [Unknown]

NARRATIVE: CASE EVENT DATE: 201507
